FAERS Safety Report 23509349 (Version 1)
Quarter: 2024Q1

REPORT INFORMATION
  Report Type: Spontaneous
  Country: GR (occurrence: GR)
  Receive Date: 20240210
  Receipt Date: 20240210
  Transmission Date: 20240410
  Serious: Yes (Other)
  Sender: FDA-Public Use
  Company Number: GR-STRIDES ARCOLAB LIMITED-2024SP001518

PATIENT

DRUGS (2)
  1. TETRACYCLINE [Suspect]
     Active Substance: TETRACYCLINE
     Indication: Acne
     Dosage: UNK
     Route: 065
  2. PREDNISOLONE [Suspect]
     Active Substance: PREDNISOLONE
     Indication: Acne
     Dosage: UNK
     Route: 065

REACTIONS (1)
  - Acne fulminans [Unknown]
